FAERS Safety Report 9802954 (Version 1)
Quarter: 2014Q1

REPORT INFORMATION
  Report Type: Spontaneous
  Country: US (occurrence: None)
  Receive Date: 20140106
  Receipt Date: 20140106
  Transmission Date: 20141002
  Serious: Yes (Hospitalization, Other)
  Sender: FDA-Public Use
  Company Number: None

PATIENT
  Age: 36 Year
  Sex: Male
  Weight: 83.01 kg

DRUGS (3)
  1. LEVAQUIN [Suspect]
     Indication: HAEMATOSPERMIA
     Route: 048
     Dates: start: 20131213, end: 20131215
  2. METOPROLOL SUCCINATE [Concomitant]
  3. IBUPROFEN [Concomitant]

REACTIONS (2)
  - Local swelling [None]
  - Tenderness [None]
